FAERS Safety Report 23814413 (Version 4)
Quarter: 2024Q3

REPORT INFORMATION
  Report Type: Spontaneous
  Country: JP (occurrence: JP)
  Receive Date: 20240503
  Receipt Date: 20240710
  Transmission Date: 20241017
  Serious: Yes (Hospitalization, Disabling, Other)
  Sender: DAIICHI
  Company Number: JP-DSJP-DSJ-2024-118751

PATIENT
  Age: 70 Year
  Sex: Female
  Weight: 55 kg

DRUGS (8)
  1. ENHERTU [Suspect]
     Active Substance: FAM-TRASTUZUMAB DERUXTECAN-NXKI
     Indication: HER2 positive breast cancer
     Dosage: 5.4 MG/KG
     Route: 041
     Dates: start: 20240220, end: 20240220
  2. ENHERTU [Suspect]
     Active Substance: FAM-TRASTUZUMAB DERUXTECAN-NXKI
     Dosage: 5.4 MG/KG
     Route: 041
     Dates: start: 20240312, end: 20240312
  3. ENHERTU [Suspect]
     Active Substance: FAM-TRASTUZUMAB DERUXTECAN-NXKI
     Dosage: 5.4 MG/KG
     Route: 041
     Dates: start: 20240402, end: 20240402
  4. ENHERTU [Suspect]
     Active Substance: FAM-TRASTUZUMAB DERUXTECAN-NXKI
     Dosage: 5.4 MG/KG
     Route: 041
     Dates: start: 20240507, end: 20240507
  5. ENHERTU [Suspect]
     Active Substance: FAM-TRASTUZUMAB DERUXTECAN-NXKI
     Dosage: 5.4 MG/KG
     Route: 041
     Dates: start: 20240528, end: 20240528
  6. ENHERTU [Suspect]
     Active Substance: FAM-TRASTUZUMAB DERUXTECAN-NXKI
     Dosage: 5.4 MG/KG
     Route: 041
     Dates: start: 20240628, end: 20240628
  7. EMEND [Concomitant]
     Active Substance: APREPITANT
     Indication: Product used for unknown indication
     Dosage: UNK
     Route: 065
  8. Antibacterial agent [Concomitant]
     Indication: Inflammation
     Dosage: UNK
     Route: 065
     Dates: start: 20240408

REACTIONS (6)
  - Sepsis [Recovered/Resolved]
  - Extradural abscess [Recovered/Resolved with Sequelae]
  - Monoplegia [Not Recovered/Not Resolved]
  - Nausea [Recovered/Resolved]
  - Diarrhoea [Recovering/Resolving]
  - Anaemia [Unknown]

NARRATIVE: CASE EVENT DATE: 20240101
